FAERS Safety Report 5102115-1 (Version None)
Quarter: 2006Q3

REPORT INFORMATION
  Report Type: 
  Country: None (occurrence: None)
  Receive Date: 20060911
  Receipt Date: 20060814
  Transmission Date: 20061208
  Serious: Yes (Other)
  Sender: FDA-Public Use
  Company Number: JP-BOEHRINGER INGELHEIM PHARMACEUTICALS, INC.-2006-BP-09949NB

PATIENT
  Sex: Male

DRUGS (5)
  1. SPIRIVA [Suspect]
     Indication: ASTHMA
     Route: 055
     Dates: start: 20040328
  2. LEUPLIN [Suspect]
     Route: 042
  3. MUCOSOLATE [Concomitant]
     Route: 048
     Dates: start: 20040422
  4. FLUTIDE:  DISKUS (FLUTICASONE PROPIONATE) [Concomitant]
     Route: 055
     Dates: start: 20040422
  5. MESTINON [Concomitant]
     Route: 048

REACTIONS (1)
  - OEDEMA [None]
